FAERS Safety Report 4818819-1 (Version None)
Quarter: 2005Q4

REPORT INFORMATION
  Report Type: 
  Country: None (occurrence: None)
  Receive Date: 20051101
  Receipt Date: 20051018
  Transmission Date: 20060501
  Serious: Yes (Hospitalization)
  Sender: FDA-Public Use
  Company Number: MED101205

PATIENT
  Sex: Female
  Weight: 76.2043 kg

DRUGS (26)
  1. MINOCYCLINE HYDROCHLORIDE [Suspect]
     Indication: ACNE
     Dosage: 90 MG, QD
     Dates: start: 20040715
  2. TROPICAMIDE OPHTHALMIC [Concomitant]
  3. BENADRYL [Concomitant]
  4. TRIAZ 6% GEL [Concomitant]
  5. ALEVE [Concomitant]
  6. CLARITIN-D [Concomitant]
  7. EXTRA STRENGTH TYLENOL [Concomitant]
  8. EQUATE DECONGESTANT [Concomitant]
  9. IBUPROFEN [Concomitant]
  10. MIDOL [Concomitant]
  11. EQUATE DECONGESTANT [Concomitant]
  12. REV-EYES [Concomitant]
  13. SUDEPHEDRON [Concomitant]
  14. DIFFERIN GEL [Concomitant]
  15. LEXAPRO [Concomitant]
  16. ZOLOFT [Concomitant]
  17. TRAZODONE HCL [Concomitant]
  18. PRO-BIOTICS ACIDOPHILUS [Concomitant]
  19. WOMEN'S ULTRA MEGA [Concomitant]
  20. FISH BODY-COLS [Concomitant]
  21. VITAMIN B COMPLEX CAP [Concomitant]
  22. TEQUIN [Concomitant]
  23. PARAMAGNETIC CONTRAST [Concomitant]
  24. BUSPAR [Concomitant]
  25. MYSOLINE [Concomitant]
  26. EFFEXOR [Concomitant]

REACTIONS (2)
  - ANXIETY [None]
  - DEPRESSION [None]
